FAERS Safety Report 22694235 (Version 4)
Quarter: 2023Q4

REPORT INFORMATION
  Report Type: Spontaneous
  Country: CH (occurrence: CH)
  Receive Date: 20230711
  Receipt Date: 20231108
  Transmission Date: 20240109
  Serious: Yes (Other)
  Sender: FDA-Public Use
  Company Number: CH-BEH-2023160854

PATIENT
  Age: 46 Year
  Sex: Female
  Weight: 42 kg

DRUGS (3)
  1. PRIVIGEN [Suspect]
     Active Substance: HUMAN IMMUNOGLOBULIN G
     Indication: Polymyositis
     Dosage: 40 GRAM, QMT
     Route: 042
     Dates: start: 2013
  2. PRIVIGEN [Suspect]
     Active Substance: HUMAN IMMUNOGLOBULIN G
     Dosage: UNK
     Route: 042
  3. MABTHERA [Concomitant]
     Active Substance: RITUXIMAB
     Dosage: 500 MILLIGRAM, 6 MONTHLY

REACTIONS (8)
  - Arthritis [Not Recovered/Not Resolved]
  - Joint stiffness [Not Recovered/Not Resolved]
  - Joint swelling [Not Recovered/Not Resolved]
  - Grip strength decreased [Not Recovered/Not Resolved]
  - No adverse event [Unknown]
  - Off label use [Unknown]
  - Tenosynovitis [Unknown]
  - Chronic cutaneous lupus erythematosus [Unknown]

NARRATIVE: CASE EVENT DATE: 20221101
